FAERS Safety Report 9804249 (Version 1)
Quarter: 2014Q1

REPORT INFORMATION
  Report Type: Spontaneous
  Country: IT (occurrence: None)
  Receive Date: 20140103
  Receipt Date: 20140103
  Transmission Date: 20141002
  Serious: Yes (Other)
  Sender: FDA-Public Use
  Company Number: IT-SEPTODONT-201301670

PATIENT
  Age: 36 Year
  Sex: Male

DRUGS (1)
  1. ARTICAINE HYDROCHLORIDE WITH EPINEPHRINE [Suspect]
     Indication: LOCAL ANAESTHESIA
     Route: 004

REACTIONS (1)
  - IVth nerve paralysis [None]
